FAERS Safety Report 7959229-8 (Version None)
Quarter: 2011Q4

REPORT INFORMATION
  Report Type: 
  Country: None (occurrence: None)
  Receive Date: 20111206
  Receipt Date: 20111102
  Transmission Date: 20120403
  Serious: Yes (Life-Threatening)
  Sender: FDA-Public Use
  Company Number: NZ-B.I. PHARMACEUTICALS,INC./RIDGEFIELD-2011-EU-00626AU

PATIENT
  Sex: Male

DRUGS (8)
  1. PRADAXA [Suspect]
     Indication: CEREBROVASCULAR ACCIDENT PROPHYLAXIS
     Dosage: 220 MG
     Dates: start: 20110722
  2. PRADAXA [Suspect]
     Dosage: 150 MG
     Dates: end: 20110830
  3. ATORVASTATIN [Concomitant]
     Dosage: 10 MG
     Dates: start: 20110201
  4. FERROGRAD C [Concomitant]
     Dosage: 325 MG
     Dates: start: 20110201
  5. FUROSEMIDE [Concomitant]
     Dosage: 40 MG
     Dates: start: 20110201
  6. CILAZAPRIL [Concomitant]
     Dosage: 2.5 MG
     Dates: start: 20110201
  7. DIGOXIN [Concomitant]
     Dosage: 62.5 MCG
     Dates: start: 20110201
  8. AMIODARONE HCL [Concomitant]
     Dosage: 200 MG
     Dates: start: 20110201

REACTIONS (1)
  - BLOOD PRESSURE DECREASED [None]
